FAERS Safety Report 6416627-1 (Version None)
Quarter: 2009Q4

REPORT INFORMATION
  Report Type: 
  Country: None (occurrence: None)
  Receive Date: 20091023
  Receipt Date: 20091012
  Transmission Date: 20100525
  Serious: Yes (Other)
  Sender: FDA-Public Use
  Company Number: 2009AL006667

PATIENT
  Sex: Male

DRUGS (9)
  1. CITALOPRAM HYDROBROMIDE [Suspect]
     Indication: DRUG EXPOSURE DURING PREGNANCY
     Dosage: 60 MG;QD;TRPL
     Route: 064
     Dates: end: 20090923
  2. LORAZEPAM [Suspect]
     Indication: DRUG EXPOSURE DURING PREGNANCY
     Dosage: 2.5 MG;QD;TRPL
     Route: 064
  3. ANTABUSE [Concomitant]
  4. METHADONE [Concomitant]
  5. COCAINE [Concomitant]
  6. DEPAKENE [Concomitant]
  7. DIAMORPHINE [Concomitant]
  8. ZYPREXA [Concomitant]
  9. SEROQUEL [Concomitant]

REACTIONS (4)
  - CAESAREAN SECTION [None]
  - DRUG WITHDRAWAL SYNDROME NEONATAL [None]
  - FOETAL GROWTH RETARDATION [None]
  - NEONATAL RESPIRATORY DISTRESS SYNDROME [None]
